FAERS Safety Report 10228780 (Version 1)
Quarter: 2014Q2

REPORT INFORMATION
  Report Type: Spontaneous
  Country: US (occurrence: US)
  Receive Date: 20140610
  Receipt Date: 20140610
  Transmission Date: 20141212
  Serious: No
  Sender: FDA-Public Use
  Company Number: US-TEVA-487423USA

PATIENT
  Age: 26 Year
  Sex: Female
  Weight: 46.76 kg

DRUGS (9)
  1. TAKE ACTION [Suspect]
     Indication: POST COITAL CONTRACEPTION
     Dosage: 1.5 MILLIGRAM DAILY;
     Route: 048
     Dates: start: 20140530, end: 20140530
  2. LAMICTAL [Concomitant]
     Indication: NERVOUS SYSTEM DISORDER
  3. NAMENDA [Concomitant]
     Indication: ALTERED VISUAL DEPTH PERCEPTION
  4. FERREX [Concomitant]
     Indication: IRON DEFICIENCY
  5. ANTIPYRINE [Concomitant]
     Indication: EUSTACHIAN TUBE DISORDER
     Route: 001
  6. BENZOCAINE [Concomitant]
     Indication: EUSTACHIAN TUBE DISORDER
     Route: 001
  7. CLINDAMYCIN [Concomitant]
     Indication: ACNE CYSTIC
  8. ATRALIN [Concomitant]
     Indication: ACNE CYSTIC
  9. ACZONE [Concomitant]
     Indication: ACNE CYSTIC

REACTIONS (3)
  - Tremor [Not Recovered/Not Resolved]
  - Headache [Recovered/Resolved]
  - Menstruation irregular [Not Recovered/Not Resolved]
